FAERS Safety Report 20410801 (Version 6)
Quarter: 2022Q3

REPORT INFORMATION
  Report Type: Report from Study
  Country: US (occurrence: US)
  Receive Date: 20220201
  Receipt Date: 20220810
  Transmission Date: 20221027
  Serious: Yes (Other)
  Sender: FDA-Public Use
  Company Number: US-ABBVIE-22K-163-4258070-00

PATIENT
  Age: 75 Year
  Sex: Male
  Weight: 77.180 kg

DRUGS (8)
  1. HUMIRA [Suspect]
     Active Substance: ADALIMUMAB
     Indication: Crohn^s disease
     Dosage: CITRATE FREE
     Route: 058
     Dates: start: 201912
  2. HUMIRA [Suspect]
     Active Substance: ADALIMUMAB
     Route: 058
  3. PFIZER-BIONTECH COVID-19 VACCINE [Concomitant]
     Active Substance: TOZINAMERAN
     Indication: COVID-19 immunisation
     Dosage: FIRST DOSE
     Route: 030
     Dates: start: 20210101, end: 20210101
  4. PFIZER-BIONTECH COVID-19 VACCINE [Concomitant]
     Active Substance: TOZINAMERAN
     Dosage: SECOND DOSE
     Route: 030
     Dates: start: 20210207, end: 20210207
  5. PFIZER-BIONTECH COVID-19 VACCINE [Concomitant]
     Active Substance: TOZINAMERAN
     Dosage: BOOSTER DOSE
     Route: 030
     Dates: start: 20210820, end: 20210820
  6. TESTOSTERONE [Concomitant]
     Active Substance: TESTOSTERONE
     Indication: Libido disorder
  7. TESTOSTERONE [Concomitant]
     Active Substance: TESTOSTERONE
     Indication: Asthenia
  8. ZOLOFT [Concomitant]
     Active Substance: SERTRALINE HYDROCHLORIDE
     Indication: Anxiety

REACTIONS (8)
  - Corneal oedema [Not Recovered/Not Resolved]
  - Transplant rejection [Unknown]
  - Transplant rejection [Unknown]
  - Vision blurred [Not Recovered/Not Resolved]
  - Corneal transplant [Recovered/Resolved]
  - Visual impairment [Unknown]
  - Corneal transplant [Recovering/Resolving]
  - Vision blurred [Not Recovered/Not Resolved]

NARRATIVE: CASE EVENT DATE: 20200201
